FAERS Safety Report 13240049 (Version 3)
Quarter: 2017Q1

REPORT INFORMATION
  Report Type: Spontaneous
  Country: US (occurrence: US)
  Receive Date: 20170216
  Receipt Date: 20170301
  Transmission Date: 20170428
  Serious: No
  Sender: FDA-Public Use
  Company Number: US-GLAXOSMITHKLINE-US2017GSK022080

PATIENT
  Sex: Female

DRUGS (1)
  1. BREO ELLIPTA [Suspect]
     Active Substance: FLUTICASONE FUROATE\VILANTEROL TRIFENATATE
     Indication: BRONCHITIS
     Dosage: 1 PUFF(S), 1D
     Dates: start: 20170118, end: 20170208

REACTIONS (6)
  - Throat irritation [Recovering/Resolving]
  - Oral pain [Recovering/Resolving]
  - Tongue discomfort [Recovering/Resolving]
  - Product use issue [Unknown]
  - Buccal mucosal roughening [Recovering/Resolving]
  - Adverse drug reaction [Unknown]
